FAERS Safety Report 6543830-2 (Version None)
Quarter: 2010Q1

REPORT INFORMATION
  Report Type: 
  Country: None (occurrence: None)
  Receive Date: 20100120
  Receipt Date: 20100115
  Transmission Date: 20100710
  Serious: Yes (Death)
  Sender: FDA-Public Use
  Company Number: US-JNJFOC-20100105328

PATIENT
  Age: 52 Year
  Sex: Female

DRUGS (5)
  1. ACETAMINOPHEN [Suspect]
  2. ACETAMINOPHEN [Suspect]
     Indication: SUICIDE ATTEMPT
  3. ALL OTHER NON-THERAPEUTIC PRODUCTS [Suspect]
     Indication: SUICIDE ATTEMPT
  4. CARBON MONOXIDE [Suspect]
     Indication: SUICIDE ATTEMPT
     Route: 055
  5. HYDROGEN CYANIDE [Suspect]
     Indication: SUICIDE ATTEMPT

REACTIONS (1)
  - DRUG TOXICITY [None]
